FAERS Safety Report 11135205 (Version 2)
Quarter: 2015Q3

REPORT INFORMATION
  Report Type: Report from Study
  Country: CA (occurrence: CA)
  Receive Date: 20150525
  Receipt Date: 20150707
  Transmission Date: 20151125
  Serious: Yes (Hospitalization, Other)
  Sender: FDA-Public Use
  Company Number: CA-JNJFOC-20150513819

PATIENT
  Sex: Female

DRUGS (1)
  1. REMICADE [Suspect]
     Active Substance: INFLIXIMAB
     Indication: COLITIS ULCERATIVE
     Dosage: ^MOTHER^S DOSING^
     Route: 042
     Dates: start: 20100312

REACTIONS (3)
  - Umbilical cord around neck [Recovered/Resolved]
  - Foetal exposure during pregnancy [Recovered/Resolved]
  - Exposure during breast feeding [Unknown]

NARRATIVE: CASE EVENT DATE: 2014
